FAERS Safety Report 8835392 (Version 1)
Quarter: 2012Q4

REPORT INFORMATION
  Report Type: Report from Study
  Country: CA (occurrence: CA)
  Receive Date: 20121011
  Receipt Date: 20121011
  Transmission Date: 20130627
  Serious: Yes (Other)
  Sender: FDA-Public Use
  Company Number: CA-JNJFOC-20121002100

PATIENT
  Age: 67 None
  Sex: Female
  Weight: 77 kg

DRUGS (7)
  1. REMICADE [Suspect]
     Indication: RHEUMATOID ARTHRITIS
     Route: 042
     Dates: start: 200110
  2. METHOTREXATE [Concomitant]
     Route: 065
  3. ACTONEL [Concomitant]
     Route: 065
  4. SPIRIVA [Concomitant]
     Route: 065
  5. HCTZ [Concomitant]
     Route: 065
  6. ASA [Concomitant]
     Route: 065
  7. MULTIVITE [Concomitant]
     Route: 065

REACTIONS (2)
  - Gingival graft [Recovered/Resolved]
  - Infection [Recovered/Resolved]
